FAERS Safety Report 10709794 (Version 1)
Quarter: 2015Q1

REPORT INFORMATION
  Report Type: Report from Study
  Country: ZW (occurrence: ZW)
  Receive Date: 20150114
  Receipt Date: 20150114
  Transmission Date: 20150721
  Serious: Yes (Life-Threatening)
  Sender: FDA-Public Use
  Company Number: ZW-BRISTOL-MYERS SQUIBB COMPANY-20173589

PATIENT
  Age: 45 Year
  Sex: Male
  Weight: 40.8 kg

DRUGS (3)
  1. EFAVIRENZ [Suspect]
     Active Substance: EFAVIRENZ
     Indication: HIV INFECTION
     Dosage: 600 MG, QD
     Route: 048
     Dates: start: 20130910
  2. EMTRICITABINE W/TENOFOVIR DISOPROXIL FUMARATE [Suspect]
     Active Substance: EMTRICITABINE\TENOFOVIR DISOPROXIL
     Indication: HIV INFECTION
     Dosage: 1DF:200/300 MG,QD,  LAST DOSE ON:27JAN14
     Route: 048
     Dates: start: 20130910
  3. RIFAMPICIN/ISONIAZID/PYRAZINAMIDE/ETHAMBUTOL [Suspect]
     Active Substance: ETHAMBUTOL HYDROCHLORIDE\ISONIAZID\PYRAZINAMIDE\RIFAMPIN
     Indication: HIV INFECTION
     Dosage: 1DF: 150/75 MG QD  450/225/1200/825 MG  LAST DOSE:27JAN14
     Route: 048
     Dates: start: 20130910

REACTIONS (8)
  - Dehydration [None]
  - Pancytopenia [None]
  - Diarrhoea [None]
  - Myelodysplastic syndrome [None]
  - Decreased appetite [None]
  - Leukopenia [Not Recovered/Not Resolved]
  - Weight decreased [Unknown]
  - Vomiting [None]

NARRATIVE: CASE EVENT DATE: 20140121
